FAERS Safety Report 14116500 (Version 1)
Quarter: 2017Q4

REPORT INFORMATION
  Report Type: Spontaneous
  Country: US (occurrence: US)
  Receive Date: 20171023
  Receipt Date: 20171023
  Transmission Date: 20180321
  Serious: No
  Sender: FDA-Public Use
  Company Number: US-PURDUE-USA-2017-0140665

PATIENT
  Age: 56 Year
  Sex: Male

DRUGS (2)
  1. OXYCONTIN [Suspect]
     Active Substance: OXYCODONE HYDROCHLORIDE
     Indication: BACK PAIN
  2. OXYCONTIN [Suspect]
     Active Substance: OXYCODONE HYDROCHLORIDE
     Indication: PAIN IN EXTREMITY
     Dosage: 80 MG, BID
     Route: 048
     Dates: start: 20170828, end: 20170901

REACTIONS (16)
  - Dry mouth [Unknown]
  - Insomnia [Recovering/Resolving]
  - Sinusitis [Unknown]
  - Hyperhidrosis [Recovering/Resolving]
  - Unevaluable event [Recovering/Resolving]
  - Malaise [Recovering/Resolving]
  - Back injury [Unknown]
  - Product quality issue [Unknown]
  - Feeling jittery [Recovering/Resolving]
  - Feeling abnormal [Recovering/Resolving]
  - Influenza like illness [Recovering/Resolving]
  - Product tampering [Unknown]
  - Flushing [Recovering/Resolving]
  - Drug ineffective [Unknown]
  - Feeling of body temperature change [Recovering/Resolving]
  - Cold sweat [Recovering/Resolving]

NARRATIVE: CASE EVENT DATE: 20170828
